FAERS Safety Report 11876623 (Version 1)
Quarter: 2015Q4

REPORT INFORMATION
  Report Type: Spontaneous
  Country: SE (occurrence: SE)
  Receive Date: 20151229
  Receipt Date: 20151229
  Transmission Date: 20160305
  Serious: Yes (Hospitalization)
  Sender: FDA-Public Use
  Company Number: SE-PFIZER INC-2015467153

PATIENT
  Age: 47 Year
  Sex: Female

DRUGS (5)
  1. PENTASA [Concomitant]
     Active Substance: MESALAMINE
     Dosage: UNK
  2. SPIRONOLAKTON NYCOMED [Concomitant]
     Dosage: UNK
  3. OESTRING [Suspect]
     Active Substance: ESTRADIOL
     Indication: PROPHYLAXIS
  4. BISOMYL [Concomitant]
     Dosage: UNK
  5. OESTRING [Suspect]
     Active Substance: ESTRADIOL
     Indication: VULVOVAGINAL DRYNESS
     Dosage: UNK
     Route: 067
     Dates: start: 20150901, end: 20150907

REACTIONS (4)
  - Erythema [Recovered/Resolved]
  - Blood pressure increased [Recovered/Resolved]
  - Peripheral swelling [Recovered/Resolved]
  - Pain in extremity [Recovered/Resolved]

NARRATIVE: CASE EVENT DATE: 20150906
